FAERS Safety Report 4692496-5 (Version None)
Quarter: 2005Q2

REPORT INFORMATION
  Report Type: 
  Country: None (occurrence: None)
  Receive Date: 20050613
  Receipt Date: 20050502
  Transmission Date: 20051028
  Serious: No
  Sender: FDA-Public Use
  Company Number: 2005-00964

PATIENT
  Age: 73 Year
  Sex: Female
  Weight: 70.3 kg

DRUGS (1)
  1. VELCADE [Suspect]
     Indication: MULTIPLE MYELOMA
     Dosage: 1/WEEK
     Dates: start: 20050309, end: 20050420

REACTIONS (1)
  - DIZZINESS [None]
